FAERS Safety Report 11928488 (Version 1)
Quarter: 2016Q1

REPORT INFORMATION
  Report Type: Spontaneous
  Country: US (occurrence: US)
  Receive Date: 20160119
  Receipt Date: 20160119
  Transmission Date: 20160526
  Serious: Yes (Other)
  Sender: FDA-Public Use
  Company Number: US-B.I. PHARMACEUTICALS,INC./RIDGEFIELD-2016-BI-03327BI

PATIENT
  Age: 79 Year
  Sex: Female

DRUGS (1)
  1. PRADAXA [Suspect]
     Active Substance: DABIGATRAN ETEXILATE MESYLATE
     Indication: ATRIAL FIBRILLATION
     Dosage: 300 MG
     Route: 048

REACTIONS (5)
  - Eye haemorrhage [Not Recovered/Not Resolved]
  - Aqueous fibrin [Not Recovered/Not Resolved]
  - Choroidal detachment [Not Recovered/Not Resolved]
  - Hyphaema [Not Recovered/Not Resolved]
  - Vitreous haemorrhage [Not Recovered/Not Resolved]
